FAERS Safety Report 5206157-7 (Version None)
Quarter: 2006Q4

REPORT INFORMATION
  Report Type: 
  Country: None (occurrence: None)
  Receive Date: 20061026
  Receipt Date: 20060920
  Transmission Date: 20070319
  Serious: No
  Sender: FDA-Public Use
  Company Number: 2006114387

PATIENT
  Age: 44 Year
  Sex: Female

DRUGS (1)
  1. LYRICA [Suspect]
     Indication: MUSCLE SPASMS
     Dosage: 150 MG (50 MG, 3 IN 1 D)
     Dates: start: 20060919

REACTIONS (5)
  - BODY DYSMORPHIC DISORDER [None]
  - DIZZINESS [None]
  - HEADACHE [None]
  - MALAISE [None]
  - VERTIGO [None]
